FAERS Safety Report 7251744-8 (Version None)
Quarter: 2011Q1

REPORT INFORMATION
  Report Type: 
  Country: None (occurrence: None)
  Receive Date: 20110128
  Receipt Date: 20110118
  Transmission Date: 20110831
  Serious: Yes (Other)
  Sender: FDA-Public Use
  Company Number: US-ELI_LILLY_AND_COMPANY-US201101004958

PATIENT
  Age: 69 Year
  Sex: Male

DRUGS (1)
  1. CYMBALTA [Suspect]
     Dosage: 30 MG, UNK
     Dates: start: 20110117, end: 20110118

REACTIONS (3)
  - LOSS OF CONSCIOUSNESS [None]
  - HYPOAESTHESIA [None]
  - MYOCARDIAL INFARCTION [None]
